FAERS Safety Report 6899683-6 (Version None)
Quarter: 2010Q3

REPORT INFORMATION
  Report Type: 
  Country: None (occurrence: None)
  Receive Date: 20100803
  Receipt Date: 20100730
  Transmission Date: 20110219
  Serious: Yes (Life-Threatening)
  Sender: FDA-Public Use
  Company Number: IT-B.I. PHARMACEUTICALS,INC./RIDGEFIELD-2010-IT-00184IT

PATIENT
  Sex: Female

DRUGS (2)
  1. VIRAMUNE [Suspect]
     Indication: ACQUIRED IMMUNODEFICIENCY SYNDROME
     Dosage: 400 MG
     Route: 048
     Dates: start: 20100528, end: 20100704
  2. TRUVADA [Concomitant]
     Indication: ACQUIRED IMMUNODEFICIENCY SYNDROME
     Route: 048
     Dates: start: 20090112

REACTIONS (3)
  - HEPATITIS TOXIC [None]
  - PYREXIA [None]
  - RASH [None]
